FAERS Safety Report 8367027-9 (Version None)
Quarter: 2012Q2

REPORT INFORMATION
  Report Type: 
  Country: None (occurrence: None)
  Receive Date: 20120515
  Receipt Date: 20120515
  Transmission Date: 20120825
  Serious: No
  Sender: FDA-Public Use
  Company Number: None

PATIENT
  Age: 47 Year
  Sex: Male

DRUGS (14)
  1. SIMVASTATIN [Concomitant]
  2. ACETAMINOPHEN [Concomitant]
  3. LOSARTAN POTASSIUM AND HYDROCHLOROTHIAZIDE [Concomitant]
  4. ASPIRIN [Concomitant]
  5. METFORMIN HCL [Concomitant]
  6. AMLODIPINE BESYLATE AND BENAZEPRIL HCL [Concomitant]
  7. CITALOPRAM HYDROBROMIDE [Concomitant]
  8. CLONIDINE [Concomitant]
  9. CLOPIDOGREL [Concomitant]
  10. LABETALOL HCL [Suspect]
     Dates: start: 20091222, end: 20100923
  11. DOXAZOSIN MESYLATE [Concomitant]
  12. HYDRALAZINE HCL [Concomitant]
  13. POTASSIUM CHLORIDE [Concomitant]
  14. TRAMADOL HYDROCHLORIDE [Concomitant]

REACTIONS (5)
  - HEPATIC NECROSIS [None]
  - AUTOIMMUNE HEPATITIS [None]
  - DRUG-INDUCED LIVER INJURY [None]
  - ANTINUCLEAR ANTIBODY POSITIVE [None]
  - HEPATITIS [None]
